FAERS Safety Report 9846339 (Version 2)
Quarter: 2014Q1

REPORT INFORMATION
  Report Type: Report from Study
  Country: GB (occurrence: GB)
  Receive Date: 20140127
  Receipt Date: 20140325
  Transmission Date: 20141002
  Serious: Yes (Other)
  Sender: FDA-Public Use
  Company Number: GB-BRISTOL-MYERS SQUIBB COMPANY-20058574

PATIENT
  Age: 62 Year
  Sex: Male

DRUGS (10)
  1. ABATACEPT SUBQ INJECTION 125MG/ML [Suspect]
     Indication: RHEUMATOID ARTHRITIS
     Route: 058
     Dates: start: 20130705, end: 20140109
  2. ADCAL-D3 [Concomitant]
  3. BUDESONIDE [Concomitant]
     Dosage: INHALER
  4. COMBIVENT [Concomitant]
     Dosage: INHALER
  5. FOLIC ACID [Concomitant]
  6. IRBESARTAN [Concomitant]
  7. LANSOPRAZOLE [Concomitant]
  8. MELOXICAM [Concomitant]
  9. METHOTREXATE [Concomitant]
  10. PREDNISOLONE [Concomitant]

REACTIONS (2)
  - Blindness [Unknown]
  - Rheumatoid arthritis [Unknown]
